FAERS Safety Report 9984030 (Version 1)
Quarter: 2014Q1

REPORT INFORMATION
  Report Type: Spontaneous
  Country: US (occurrence: US)
  Receive Date: 20140307
  Receipt Date: 20140307
  Transmission Date: 20141002
  Serious: No
  Sender: FDA-Public Use
  Company Number: US-ABBVIE-13P-163-1183098-00

PATIENT
  Sex: Female
  Weight: 64.92 kg

DRUGS (3)
  1. HUMIRA [Suspect]
     Indication: CROHN^S DISEASE
     Route: 058
     Dates: start: 201010, end: 201010
  2. HUMIRA [Suspect]
     Route: 058
     Dates: start: 201010, end: 201010
  3. HUMIRA [Suspect]
     Route: 058
     Dates: start: 201011

REACTIONS (2)
  - Rash [Not Recovered/Not Resolved]
  - Psoriasis [Not Recovered/Not Resolved]
